FAERS Safety Report 10220905 (Version 3)
Quarter: 2014Q2

REPORT INFORMATION
  Report Type: Spontaneous
  Country: US (occurrence: None)
  Receive Date: 20140604
  Receipt Date: 20140619
  Transmission Date: 20141212
  Serious: Yes (Hospitalization, Other)
  Sender: FDA-Public Use
  Company Number: 2014-US-006499

PATIENT
  Age: 63 Year
  Sex: Female
  Weight: 55.8 kg

DRUGS (6)
  1. PRIALT [Suspect]
     Indication: PAIN
     Route: 037
     Dates: end: 20130809
  2. PRIALT [Suspect]
     Indication: COMPLEX REGIONAL PAIN SYNDROME
     Route: 037
     Dates: end: 20130809
  3. MS CONTIN [Concomitant]
  4. NEURONTIN (GABAPENTIN) [Concomitant]
  5. AMBIEN (ZOLPIDEM TARTRATE) [Concomitant]
  6. FLEXERIL (CYCLOBENZAPRINE HYDROCHLORIDE) [Concomitant]

REACTIONS (10)
  - Pneumonia [None]
  - Urinary tract infection [None]
  - Haemorrhage [None]
  - Clostridium difficile infection [None]
  - Weight decreased [None]
  - Cerebrovascular accident [None]
  - Mental status changes [None]
  - Contusion [None]
  - Device dislocation [None]
  - Implant site bruising [None]
